FAERS Safety Report 4618190-4 (Version None)
Quarter: 2005Q1

REPORT INFORMATION
  Report Type: 
  Country: None (occurrence: None)
  Receive Date: 20050322
  Receipt Date: 20050306
  Transmission Date: 20050727
  Serious: Yes (Death, Other)
  Sender: FDA-Public Use
  Company Number: 2005042517

PATIENT
  Age: 50 Year
  Sex: Male

DRUGS (3)
  1. VORICONAZOLE  (VORICONAZOLE) [Suspect]
     Indication: PROPHYLAXIS
     Dosage: 400 MG (200 MG, 2 IN 1 D), ORAL
     Route: 048
     Dates: start: 20030501
  2. IMMUNOSUPPRESSIVE AGENTS (IMMUNOSUPPRESSIVE AGENTS) [Concomitant]
  3. CORTICOSTEROIDS  (CORTICOSTEROIDS) [Concomitant]

REACTIONS (11)
  - BLOOD BILIRUBIN INCREASED [None]
  - BRADYCARDIA [None]
  - DERMATITIS EXFOLIATIVE [None]
  - DIARRHOEA [None]
  - DIARRHOEA HAEMORRHAGIC [None]
  - DRUG EFFECT DECREASED [None]
  - FEBRILE NEUTROPENIA [None]
  - GRAFT VERSUS HOST DISEASE [None]
  - MENTAL STATUS CHANGES [None]
  - PULMONARY THROMBOSIS [None]
  - ZYGOMYCOSIS [None]
